FAERS Safety Report 9261831 (Version 1)
Quarter: 2013Q2

REPORT INFORMATION
  Report Type: Spontaneous
  Country: US (occurrence: DE)
  Receive Date: 20130429
  Receipt Date: 20130429
  Transmission Date: 20140414
  Serious: Yes (Other)
  Sender: FDA-Public Use
  Company Number: US-PFIZER INC-2013128235

PATIENT
  Age: 72 Year
  Sex: Female

DRUGS (2)
  1. LATANOPROST [Suspect]
     Dosage: UNK
  2. CALCIUM D3 ^STADA^ [Concomitant]
     Indication: BONE DISORDER
     Dosage: UNK

REACTIONS (1)
  - Intraocular pressure increased [Unknown]
